FAERS Safety Report 21862124 (Version 2)
Quarter: 2023Q1

REPORT INFORMATION
  Report Type: Report from Study
  Country: IT (occurrence: IT)
  Receive Date: 20230113
  Receipt Date: 20230125
  Transmission Date: 20230418
  Serious: Yes (Death, Life-Threatening, Hospitalization, Other)
  Sender: FDA-Public Use
  Company Number: IT-002147023-NVSC2021IT293288

PATIENT

DRUGS (5)
  1. RUXOLITINIB [Suspect]
     Active Substance: RUXOLITINIB
     Indication: Myelofibrosis
     Dosage: 20 UNK(DAILY)
     Route: 065
     Dates: start: 20210621, end: 20211007
  2. RUXOLITINIB [Suspect]
     Active Substance: RUXOLITINIB
     Dosage: 40 MG
     Route: 048
     Dates: start: 20210621
  3. RUXOLITINIB [Suspect]
     Active Substance: RUXOLITINIB
     Dosage: 40 UNK, (DAILY)
     Route: 065
     Dates: start: 20211008
  4. CRESTOR [Concomitant]
     Active Substance: ROSUVASTATIN CALCIUM
     Indication: Hypercholesterolaemia
     Dosage: 10 MG
     Route: 065
     Dates: start: 20200821
  5. FOLIC ACID [Concomitant]
     Active Substance: FOLIC ACID
     Indication: Folate deficiency
     Dosage: UNK
     Route: 065
     Dates: start: 202112

REACTIONS (10)
  - Acinetobacter infection [Unknown]
  - Anaemia [Unknown]
  - Central nervous system lesion [Not Recovered/Not Resolved]
  - Epilepsy [Unknown]
  - Necrosis [Unknown]
  - Metastasis [Unknown]
  - Pain [Recovered/Resolved]
  - Paraesthesia [Recovered/Resolved]
  - Myelofibrosis [Fatal]
  - Malignant neoplasm progression [Fatal]

NARRATIVE: CASE EVENT DATE: 20210623
